FAERS Safety Report 8883566 (Version 1)
Quarter: 2012Q4

REPORT INFORMATION
  Report Type: 
  Country: US (occurrence: US)
  Receive Date: 20121102
  Receipt Date: 20121102
  Transmission Date: 20130627
  Serious: No
  Sender: FDA-Public Use
  Company Number: US-ASTRAZENECA-2012SE02605

PATIENT
  Age: 70 Year
  Sex: Female
  Weight: 72.6 kg

DRUGS (8)
  1. CRESTOR [Suspect]
     Indication: BLOOD CHOLESTEROL INCREASED
     Route: 048
     Dates: end: 201112
  2. CRESTOR [Suspect]
     Indication: BLOOD CHOLESTEROL INCREASED
     Route: 048
  3. TOPROL XL [Concomitant]
     Indication: HYPERTENSION
  4. COENZYME Q10 [Concomitant]
  5. VITAMIN B12 [Concomitant]
  6. VITAMIN D [Concomitant]
  7. CALCIUM [Concomitant]
  8. CORTISONE [Concomitant]
     Indication: SPINAL PAIN

REACTIONS (4)
  - Gait disturbance [Unknown]
  - Myalgia [Recovered/Resolved]
  - Blood cholesterol increased [Unknown]
  - Drug dose omission [Unknown]
